FAERS Safety Report 8115202-0 (Version None)
Quarter: 2012Q1

REPORT INFORMATION
  Report Type: 
  Country: None (occurrence: None)
  Receive Date: 20120206
  Receipt Date: 20120202
  Transmission Date: 20120608
  Serious: Yes (Other)
  Sender: FDA-Public Use
  Company Number: JP-JNJFOC-20120200628

PATIENT
  Age: 71 Year
  Sex: Female

DRUGS (36)
  1. DOXORUBICIN HCL [Suspect]
     Dosage: CYCLE 5
     Route: 042
  2. DOXORUBICIN HCL [Suspect]
     Dosage: CYCLE 3
     Route: 042
  3. DOXORUBICIN HCL [Suspect]
     Dosage: CYCLE 5
     Route: 042
  4. CYCLOPHOSPHAMIDE [Suspect]
     Route: 065
  5. CYCLOPHOSPHAMIDE [Suspect]
     Route: 065
  6. PREDNISONE TAB [Suspect]
     Route: 065
  7. PREDNISONE TAB [Suspect]
     Route: 065
  8. DOXORUBICIN HCL [Suspect]
     Dosage: CYCLE 2
     Route: 042
  9. CYCLOPHOSPHAMIDE [Suspect]
     Route: 065
  10. VINCRISTINE [Suspect]
     Indication: DIFFUSE LARGE B-CELL LYMPHOMA
     Route: 065
  11. VINCRISTINE [Suspect]
     Route: 065
  12. VINCRISTINE [Suspect]
     Route: 065
  13. VINCRISTINE [Suspect]
     Route: 065
  14. PREDNISONE TAB [Suspect]
     Indication: DIFFUSE LARGE B-CELL LYMPHOMA
     Route: 065
  15. PREDNISONE TAB [Suspect]
     Route: 065
  16. PREDNISONE TAB [Suspect]
     Route: 065
  17. RITUXIMAB [Suspect]
     Route: 065
  18. CYCLOPHOSPHAMIDE [Suspect]
     Indication: DIFFUSE LARGE B-CELL LYMPHOMA
     Route: 065
  19. CYCLOPHOSPHAMIDE [Suspect]
     Route: 065
  20. CYCLOPHOSPHAMIDE [Suspect]
     Route: 065
  21. DOXORUBICIN HCL [Suspect]
     Dosage: CYCLE 1
     Route: 042
  22. DOXORUBICIN HCL [Suspect]
     Dosage: CYCLE 3
     Route: 042
  23. DOXORUBICIN HCL [Suspect]
     Dosage: CYCLE 6
     Route: 042
  24. RITUXIMAB [Suspect]
     Route: 065
  25. DOXORUBICIN HCL [Suspect]
     Dosage: CYCLE 4
     Route: 042
  26. RITUXIMAB [Suspect]
     Indication: DIFFUSE LARGE B-CELL LYMPHOMA
     Route: 065
  27. RITUXIMAB [Suspect]
     Route: 065
  28. RITUXIMAB [Suspect]
     Route: 065
  29. RITUXIMAB [Suspect]
     Route: 065
  30. VINCRISTINE [Suspect]
     Route: 065
  31. DOXORUBICIN HCL [Suspect]
     Indication: DIFFUSE LARGE B-CELL LYMPHOMA
     Dosage: CYCLE 1
     Route: 042
  32. PREDNISONE TAB [Suspect]
     Route: 065
  33. DOXORUBICIN HCL [Suspect]
     Dosage: CYCLE 2
     Route: 042
  34. DOXORUBICIN HCL [Suspect]
     Dosage: CYCLE 6
     Route: 042
  35. DOXORUBICIN HCL [Suspect]
     Dosage: CYCLE 4
     Route: 042
  36. VINCRISTINE [Suspect]
     Route: 065

REACTIONS (1)
  - CEREBRAL INFARCTION [None]
